FAERS Safety Report 16255466 (Version 1)
Quarter: 2019Q2

REPORT INFORMATION
  Report Type: Spontaneous
  Country: US (occurrence: US)
  Receive Date: 20190326
  Receipt Date: 20190326
  Transmission Date: 20190711
  Serious: Yes (Hospitalization)
  Sender: FDA-Public Use
  Company Number: None

PATIENT
  Age: 70 Year
  Sex: Male
  Weight: 99 kg

DRUGS (1)
  1. NIFEDIPINE. [Suspect]
     Active Substance: NIFEDIPINE
     Indication: HYPERTENSION
     Route: 048
     Dates: start: 20190213, end: 20190219

REACTIONS (4)
  - Rash morbilliform [None]
  - Erythema multiforme [None]
  - Pruritus [None]
  - Drug eruption [None]

NARRATIVE: CASE EVENT DATE: 20190218
